FAERS Safety Report 15864149 (Version 1)
Quarter: 2019Q1

REPORT INFORMATION
  Report Type: Spontaneous
  Country: FR (occurrence: FR)
  Receive Date: 20190124
  Receipt Date: 20190124
  Transmission Date: 20190417
  Serious: Yes (Hospitalization)
  Sender: FDA-Public Use
  Company Number: FR-PROVELL PHARMACEUTICALS-2061715

PATIENT
  Age: 41 Year
  Sex: Female
  Weight: 55 kg

DRUGS (9)
  1. PARACETAMOL [Suspect]
     Active Substance: ACETAMINOPHEN
  2. ESOMEPRAZOLE. [Suspect]
     Active Substance: ESOMEPRAZOLE MAGNESIUM
  3. ANTIGONE [Suspect]
     Active Substance: DESOGESTREL
     Route: 048
     Dates: end: 20170831
  4. ACTISKENAN [Suspect]
     Active Substance: MORPHINE SULFATE
  5. INSTANYL [Suspect]
     Active Substance: FENTANYL
     Route: 045
  6. EUTHYROX [Suspect]
     Active Substance: LEVOTHYROXINE SODIUM
     Indication: PRODUCT USED FOR UNKNOWN INDICATION
  7. SKENAN [Suspect]
     Active Substance: MORPHINE SULFATE
  8. METHOTREXATE. [Suspect]
     Active Substance: METHOTREXATE
     Route: 042
     Dates: start: 20170530, end: 20170801
  9. DUPHALAC [Suspect]
     Active Substance: LACTULOSE

REACTIONS (1)
  - Jugular vein thrombosis [Unknown]

NARRATIVE: CASE EVENT DATE: 20170828
